FAERS Safety Report 11146741 (Version 1)
Quarter: 2015Q2

REPORT INFORMATION
  Report Type: Spontaneous
  Country: US (occurrence: US)
  Receive Date: 20150528
  Receipt Date: 20150528
  Transmission Date: 20150821
  Serious: Yes (Hospitalization)
  Sender: FDA-Public Use
  Company Number: US-BAUSCH-BL-2015-014140

PATIENT
  Age: 61 Year
  Sex: Male

DRUGS (7)
  1. METRONIDAZOLE. [Suspect]
     Active Substance: METRONIDAZOLE
     Indication: SEPSIS
  2. IMIPENEM [Concomitant]
     Active Substance: IMIPENEM
     Indication: PRODUCT USED FOR UNKNOWN INDICATION
  3. AZTREONAM. [Suspect]
     Active Substance: AZTREONAM
     Indication: SEPSIS
  4. VANCOMYCIN [Concomitant]
     Active Substance: VANCOMYCIN
     Indication: PNEUMONIA ASPIRATION
  5. AZTREONAM. [Suspect]
     Active Substance: AZTREONAM
     Indication: PNEUMONIA ASPIRATION
     Route: 065
  6. METRONIDAZOLE. [Suspect]
     Active Substance: METRONIDAZOLE
     Indication: PNEUMONIA ASPIRATION
     Route: 065
  7. LINEZOLID. [Concomitant]
     Active Substance: LINEZOLID
     Indication: SEPSIS

REACTIONS (4)
  - Immune thrombocytopenic purpura [Recovering/Resolving]
  - Mucosal haemorrhage [Recovering/Resolving]
  - Petechiae [Recovering/Resolving]
  - Haematuria [Unknown]
